FAERS Safety Report 24441624 (Version 2)
Quarter: 2024Q4

REPORT INFORMATION
  Report Type: Spontaneous
  Country: US (occurrence: US)
  Receive Date: 20241016
  Receipt Date: 20241017
  Transmission Date: 20250115
  Serious: No
  Sender: ROCHE
  Company Number: US-ROCHE-3510600

PATIENT
  Sex: Female

DRUGS (8)
  1. EMICIZUMAB [Suspect]
     Active Substance: EMICIZUMAB
     Indication: Product used for unknown indication
     Route: 064
  2. EMICIZUMAB [Suspect]
     Active Substance: EMICIZUMAB
     Indication: Product used for unknown indication
     Route: 063
  3. NOVOSEVEN [Suspect]
     Active Substance: COAGULATION FACTOR VIIA RECOMBINANT HUMAN
     Indication: Product used for unknown indication
     Route: 064
  4. NOVOSEVEN [Suspect]
     Active Substance: COAGULATION FACTOR VIIA RECOMBINANT HUMAN
     Route: 063
  5. OXYTOCIN [Suspect]
     Active Substance: OXYTOCIN
     Indication: Product used for unknown indication
     Route: 064
  6. OXYTOCIN [Suspect]
     Active Substance: OXYTOCIN
     Route: 063
  7. TRANEXAMIC ACID [Suspect]
     Active Substance: TRANEXAMIC ACID
     Indication: Product used for unknown indication
     Route: 064
  8. TRANEXAMIC ACID [Suspect]
     Active Substance: TRANEXAMIC ACID
     Route: 063

REACTIONS (3)
  - Foetal exposure during pregnancy [Unknown]
  - Cephalhaematoma [Unknown]
  - Exposure via breast milk [Unknown]
